FAERS Safety Report 16291166 (Version 1)
Quarter: 2019Q2

REPORT INFORMATION
  Report Type: Spontaneous
  Country: CN (occurrence: CN)
  Receive Date: 20190509
  Receipt Date: 20190509
  Transmission Date: 20190711
  Serious: Yes (Other)
  Sender: FDA-Public Use
  Company Number: CN-PFIZER INC-2019194812

PATIENT

DRUGS (1)
  1. CAMPTO [Suspect]
     Active Substance: IRINOTECAN

REACTIONS (2)
  - Oedema peripheral [Unknown]
  - Cellulitis [Unknown]
